FAERS Safety Report 9238686 (Version 1)
Quarter: 2013Q2

REPORT INFORMATION
  Report Type: Spontaneous
  Country: US (occurrence: None)
  Receive Date: 20130417
  Receipt Date: 20130417
  Transmission Date: 20140414
  Serious: No
  Sender: FDA-Public Use
  Company Number: None

PATIENT
  Age: 44 Year
  Sex: Male
  Weight: 172.37 kg

DRUGS (1)
  1. XANAX [Suspect]
     Indication: BIPOLAR DISORDER
     Dosage: XANAX  1MG  QID  PO
     Route: 048
     Dates: start: 2003

REACTIONS (1)
  - Drug ineffective [None]
